FAERS Safety Report 12360230 (Version 1)
Quarter: 2016Q2

REPORT INFORMATION
  Report Type: Spontaneous
  Country: FR (occurrence: FR)
  Receive Date: 20160512
  Receipt Date: 20160512
  Transmission Date: 20160815
  Serious: Yes (Hospitalization)
  Sender: FDA-Public Use
  Company Number: FR-CLINIGEN GROUP PLC/ CLINIGEN HEALTHCARE LTD-FR-CLGN-16-00099

PATIENT
  Age: 50 Year
  Sex: Male

DRUGS (12)
  1. FOSCAVIR [Suspect]
     Active Substance: FOSCARNET SODIUM
     Indication: HERPES VIRUS INFECTION
     Route: 042
     Dates: start: 20160408, end: 20160408
  2. TANGANIL [Suspect]
     Active Substance: ACETYLLEUCINE
     Indication: DIZZINESS
     Route: 048
     Dates: end: 20160410
  3. TRAMADOL BASE [Suspect]
     Active Substance: TRAMADOL
     Indication: PAIN
     Dates: start: 20160406, end: 20160406
  4. TRAMADOL BASE [Suspect]
     Active Substance: TRAMADOL
     Route: 048
     Dates: start: 20160409, end: 20160410
  5. SERESTA [Concomitant]
     Active Substance: OXAZEPAM
     Indication: PRODUCT USED FOR UNKNOWN INDICATION
     Dates: start: 20160406, end: 20160407
  6. PARACETAMOL [Concomitant]
     Active Substance: ACETAMINOPHEN
     Indication: PAIN
     Route: 048
  7. CYMEVAN [Concomitant]
     Active Substance: GANCICLOVIR
     Dates: start: 20160408
  8. TRIFLUCAN [Concomitant]
     Active Substance: FLUCONAZOLE
     Indication: FUNGAL INFECTION
     Dates: start: 20160409
  9. AMIKACIN [Concomitant]
     Active Substance: AMIKACIN
     Indication: ESCHERICHIA BACTERAEMIA
     Dates: start: 20160401, end: 20160408
  10. LOVENOX [Concomitant]
     Active Substance: ENOXAPARIN SODIUM
     Indication: THROMBOSIS PROPHYLAXIS
     Route: 058
  11. FOSCAVIR [Suspect]
     Active Substance: FOSCARNET SODIUM
     Dates: end: 20160411
  12. INVANZ [Concomitant]
     Active Substance: ERTAPENEM SODIUM
     Indication: ESCHERICHIA BACTERAEMIA
     Dates: start: 20160401, end: 20160408

REACTIONS (7)
  - Disorientation [Not Recovered/Not Resolved]
  - Confusional state [Not Recovered/Not Resolved]
  - Hallucination, visual [Not Recovered/Not Resolved]
  - Coma [Recovered/Resolved]
  - Blood bicarbonate abnormal [Unknown]
  - Seizure [Recovered/Resolved]
  - Agitation [Not Recovered/Not Resolved]

NARRATIVE: CASE EVENT DATE: 20160409
